FAERS Safety Report 4702634-3 (Version None)
Quarter: 2005Q2

REPORT INFORMATION
  Report Type: 
  Country: None (occurrence: None)
  Receive Date: 20050629
  Receipt Date: 20040621
  Transmission Date: 20051028
  Serious: No
  Sender: FDA-Public Use
  Company Number: US-GLAXOSMITHKLINE-A0515529A

PATIENT
  Sex: Female

DRUGS (1)
  1. ZYBAN [Suspect]

REACTIONS (1)
  - HYPOAESTHESIA [None]
